FAERS Safety Report 10200370 (Version 1)
Quarter: 2014Q2

REPORT INFORMATION
  Report Type: Spontaneous
  Country: BR (occurrence: BR)
  Receive Date: 20140528
  Receipt Date: 20140528
  Transmission Date: 20141212
  Serious: Yes (Other)
  Sender: FDA-Public Use
  Company Number: BR-PFIZER INC-2014140825

PATIENT
  Age: 65 Year
  Sex: Female
  Weight: 65 kg

DRUGS (6)
  1. LYRICA [Suspect]
     Indication: ARTHRITIS
     Dosage: UNK, 2X/DAY
     Route: 048
     Dates: start: 20100915
  2. LYRICA [Suspect]
     Indication: BURSITIS
  3. LYRICA [Suspect]
     Indication: OSTEOARTHRITIS
  4. LYRICA [Suspect]
     Indication: FIBROMYALGIA
  5. ATENOLOL [Concomitant]
     Indication: CARDIAC DISORDER
     Dosage: ONE TABLET (50 MG), 2X/DAY
  6. LOSARTAN [Concomitant]
     Indication: CARDIAC DISORDER
     Dosage: ONE TABLET (50 MG), 2X/DAY

REACTIONS (5)
  - Spinal disorder [Unknown]
  - Cardiac valve disease [Not Recovered/Not Resolved]
  - Asthenia [Not Recovered/Not Resolved]
  - Bone disorder [Not Recovered/Not Resolved]
  - Blood pressure increased [Unknown]
